FAERS Safety Report 7450541-8 (Version None)
Quarter: 2011Q2

REPORT INFORMATION
  Report Type: 
  Country: None (occurrence: None)
  Receive Date: 20110502
  Receipt Date: 20110427
  Transmission Date: 20111010
  Serious: Yes (Death)
  Sender: FDA-Public Use
  Company Number: PHHY2011US34447

PATIENT
  Age: 63 Year
  Sex: Male

DRUGS (3)
  1. NILOTINIB [Suspect]
     Dosage: 400 MG, BID
     Dates: start: 20051222
  2. HYDROXYUREA [Concomitant]
     Dosage: UNK
     Dates: start: 20030301, end: 20050401
  3. ANAGRELIDE HCL [Concomitant]
     Dosage: UNK
     Dates: end: 20050401

REACTIONS (3)
  - DEATH [None]
  - DYSPEPSIA [None]
  - FLATULENCE [None]
